FAERS Safety Report 23520144 (Version 2)
Quarter: 2024Q1

REPORT INFORMATION
  Report Type: Report from Study
  Country: US (occurrence: US)
  Receive Date: 20240214
  Receipt Date: 20240216
  Transmission Date: 20240410
  Serious: Yes (Hospitalization)
  Sender: FDA-Public Use
  Company Number: US-ABBVIE-5638016

PATIENT
  Sex: Male

DRUGS (3)
  1. IMBRUVICA [Suspect]
     Active Substance: IBRUTINIB
     Indication: B-cell small lymphocytic lymphoma
     Dosage: FORM STRENGTH: 140 MG
     Route: 048
     Dates: start: 20200205, end: 20200309
  2. IMBRUVICA [Suspect]
     Active Substance: IBRUTINIB
     Indication: B-cell small lymphocytic lymphoma
     Dosage: FORM STRENGTH: 280 MG
     Route: 048
     Dates: start: 20200309, end: 20240208
  3. SCEMBLIX [Concomitant]
     Active Substance: ASCIMINIB HYDROCHLORIDE
     Indication: B-cell small lymphocytic lymphoma
     Dates: start: 20230411

REACTIONS (3)
  - Loss of consciousness [Unknown]
  - Atrial fibrillation [Unknown]
  - Adrenal insufficiency [Unknown]
